FAERS Safety Report 14074621 (Version 1)
Quarter: 2017Q4

REPORT INFORMATION
  Report Type: Spontaneous
  Country: US (occurrence: US)
  Receive Date: 20171011
  Receipt Date: 20171011
  Transmission Date: 20180321
  Serious: No
  Sender: FDA-Public Use
  Company Number: US-GLAXOSMITHKLINE-US2017GSK155620

PATIENT
  Sex: Female

DRUGS (8)
  1. IRON [Concomitant]
     Active Substance: IRON
  2. LAMICTAL [Suspect]
     Active Substance: LAMOTRIGINE
     Indication: PRODUCT USED FOR UNKNOWN INDICATION
     Dosage: UNK, U
     Dates: end: 201706
  3. SEROQUEL [Concomitant]
     Active Substance: QUETIAPINE FUMARATE
  4. DEXILANT [Concomitant]
     Active Substance: DEXLANSOPRAZOLE
  5. BUTALBITAL, ASPIRIN, AND CAFFEINE [Concomitant]
     Active Substance: ASPIRIN\BUTALBITAL\CAFFEINE
  6. FOLIC ACID. [Concomitant]
     Active Substance: FOLIC ACID
  7. LYRICA [Concomitant]
     Active Substance: PREGABALIN
  8. CALCIUM [Concomitant]
     Active Substance: CALCIUM

REACTIONS (1)
  - Drug hypersensitivity [Unknown]
